FAERS Safety Report 10314202 (Version 2)
Quarter: 2014Q3

REPORT INFORMATION
  Report Type: Spontaneous
  Country: US (occurrence: US)
  Receive Date: 20140718
  Receipt Date: 20140812
  Transmission Date: 20150326
  Serious: Yes (Hospitalization, Other)
  Sender: FDA-Public Use
  Company Number: US-BAYER-2014-105669

PATIENT
  Age: 23 Year
  Sex: Female

DRUGS (2)
  1. MIRENA [Suspect]
     Active Substance: LEVONORGESTREL
     Indication: CONTRACEPTION
     Dosage: 20 MCG/24HR, CONT
     Dates: start: 20100126, end: 201002
  2. MIRENA [Suspect]
     Active Substance: LEVONORGESTREL
     Indication: CONTRACEPTION
     Dosage: 20 MCG/24HR, CONT
     Route: 015
     Dates: start: 20080118, end: 20100126

REACTIONS (15)
  - Device dislocation [None]
  - Embedded device [None]
  - Medical device complication [Not Recovered/Not Resolved]
  - Off label use [None]
  - Menometrorrhagia [None]
  - Polycystic ovaries [None]
  - Emotional distress [None]
  - Infertility female [None]
  - Pelvic pain [None]
  - Injury [None]
  - Pain [None]
  - Endometriosis [None]
  - Weight increased [None]
  - Depression [None]
  - Scar [None]

NARRATIVE: CASE EVENT DATE: 200911
